FAERS Safety Report 5508325-3 (Version None)
Quarter: 2007Q4

REPORT INFORMATION
  Report Type: 
  Country: None (occurrence: None)
  Receive Date: 20071106
  Receipt Date: 20071026
  Transmission Date: 20080405
  Serious: Yes (Other)
  Sender: FDA-Public Use
  Company Number: US-PFIZER INC-2007091542

PATIENT
  Sex: Male

DRUGS (2)
  1. LIPITOR [Suspect]
  2. CARDIOVASCULAR SYSTEM DRUGS [Interacting]
     Indication: BLOOD PRESSURE

REACTIONS (4)
  - ASTHENIA [None]
  - BEDRIDDEN [None]
  - DRUG INTERACTION [None]
  - WEIGHT DECREASED [None]
